FAERS Safety Report 26158670 (Version 1)
Quarter: 2025Q4

REPORT INFORMATION
  Report Type: Spontaneous
  Country: CN (occurrence: CN)
  Receive Date: 20251215
  Receipt Date: 20251215
  Transmission Date: 20260118
  Serious: Yes (Hospitalization, Other)
  Sender: NOVO NORDISK
  Company Number: CN-NOVOPROD-1581102

PATIENT
  Age: 47 Year
  Sex: Male
  Weight: 80 kg

DRUGS (10)
  1. OZEMPIC [Suspect]
     Active Substance: SEMAGLUTIDE
     Indication: Type 2 diabetes mellitus
     Dosage: 0.25 MG, QW
     Route: 058
     Dates: start: 20240530, end: 20240620
  2. OZEMPIC [Suspect]
     Active Substance: SEMAGLUTIDE
     Dosage: 0.5 MG, QW
     Route: 058
     Dates: start: 20240626, end: 20240718
  3. OZEMPIC [Suspect]
     Active Substance: SEMAGLUTIDE
     Indication: Type 2 diabetes mellitus
     Dosage: 1 MG, QW
     Route: 058
     Dates: start: 20240725
  4. METFORMIN HYDROCHLORIDE [Suspect]
     Active Substance: METFORMIN HYDROCHLORIDE
     Indication: Type 2 diabetes mellitus
     Dosage: 0.5 MG, TID
     Route: 048
     Dates: start: 20240316
  5. COMPOUND AMINO ACID INJECTION (18AA-VII) [Concomitant]
     Indication: Fluid replacement
     Dosage: 41.3 G, QD
     Route: 042
     Dates: start: 20240801, end: 20240802
  6. COMPOUND AMINO ACID INJECTION (18AA-VII) [Concomitant]
     Indication: Nutritional supplementation
  7. POLYETHYLENE GLYCOL ELECTROLYTE [Concomitant]
     Indication: Symptomatic treatment
     Dosage: POWDER, 2 BOXES, ONE-TIME DOSE
     Route: 048
     Dates: start: 20240729, end: 20240729
  8. POTASSIUM PHOSPHATE [Concomitant]
     Active Substance: POTASSIUM PHOSPHATE
     Indication: Nutritional supplementation
     Dosage: 500 ML, ONE TIME
     Route: 042
     Dates: start: 20240731, end: 20240731
  9. SODIUM CHLORIDE [Concomitant]
     Active Substance: SODIUM CHLORIDE
     Indication: Fluid replacement
     Dosage: 500 ML, ONE-TIME
     Route: 042
     Dates: start: 20240731, end: 20240731
  10. INSULIN NOS [Concomitant]
     Active Substance: INSULIN NOS
     Indication: Product used for unknown indication
     Dosage: 4 IU, QD
     Route: 042
     Dates: start: 20240801, end: 20240802

REACTIONS (4)
  - Large intestine polyp [Recovered/Resolved]
  - Gastric ulcer helicobacter [Not Recovered/Not Resolved]
  - Haemorrhoids [Recovered/Resolved]
  - Gastrooesophageal reflux disease [Recovered/Resolved]

NARRATIVE: CASE EVENT DATE: 20240625
